FAERS Safety Report 5536548-6 (Version None)
Quarter: 2007Q4

REPORT INFORMATION
  Report Type: 
  Country: None (occurrence: None)
  Receive Date: 20071204
  Receipt Date: 20071119
  Transmission Date: 20080405
  Serious: Yes (Other)
  Sender: FDA-Public Use
  Company Number: 2007EU002562

PATIENT
  Age: 68 Year
  Sex: Female
  Weight: 63 kg

DRUGS (1)
  1. VESICARE [Suspect]
     Indication: HYPERTONIC BLADDER
     Dosage: 5 MG, /D, ORAL
     Route: 048
     Dates: start: 20071030, end: 20071102

REACTIONS (2)
  - BLOOD PRESSURE DECREASED [None]
  - TACHYCARDIA [None]
